FAERS Safety Report 11432282 (Version 1)
Quarter: 2015Q3

REPORT INFORMATION
  Report Type: Spontaneous
  Country: US (occurrence: US)
  Receive Date: 20150828
  Receipt Date: 20150828
  Transmission Date: 20151125
  Serious: No
  Sender: FDA-Public Use
  Company Number: US-SA-2015SA088622

PATIENT
  Age: 68 Year
  Sex: Female
  Weight: 83.91 kg

DRUGS (8)
  1. CERDELGA [Suspect]
     Active Substance: ELIGLUSTAT
     Indication: GAUCHER^S DISEASE
     Route: 065
     Dates: start: 20150420
  2. NIACIN. [Concomitant]
     Active Substance: NIACIN
     Dosage: 100 MG TABLET: 1 DOSE BY MOUTH AS DIRECTED
     Route: 048
     Dates: start: 20150402
  3. HAWTHORN [Concomitant]
     Dosage: 1 DOSE BY MOUTH AS DIRECTED
     Route: 048
     Dates: start: 20150402
  4. LEVOTHYROXINE SODIUM. [Concomitant]
     Active Substance: LEVOTHYROXINE SODIUM
     Dosage: 75 MG TABLET
     Route: 048
     Dates: start: 20150402
  5. VITAMIN C [Concomitant]
     Active Substance: ASCORBIC ACID
     Dosage: 1000 MG TABLET, 1 DOSE BY MOUTH AS DIRECTED
     Route: 048
     Dates: start: 20150402
  6. COENZYME Q10 [Concomitant]
     Active Substance: UBIDECARENONE
     Dosage: 100 MG-5 CAPSULE, 1 DOSE BY MOUTH AS DIRECTED
     Route: 048
     Dates: start: 20150402
  7. VITAMIN D [Concomitant]
     Active Substance: CHOLECALCIFEROL
     Dosage: 1000 UNITS CAPSULE, 1 DOSE BY MOUTH AS DIRECTED
     Route: 048
     Dates: start: 20150402
  8. MAGNESIUM [Concomitant]
     Active Substance: MAGNESIUM
     Dosage: 250 MG TABLET, 1 DOSE BY MOUTH AS DIRECTED
     Route: 048
     Dates: start: 20150402

REACTIONS (1)
  - Thyroid neoplasm [Not Recovered/Not Resolved]
